FAERS Safety Report 7424383 (Version 2)
Quarter: 2013Q4

REPORT INFORMATION
  Report Type: Spontaneous
  Country: US (occurrence: US)
  Receive Date: 20100618
  Receipt Date: 20131015
  Transmission Date: 20140711
  Serious: No
  Sender: FDA-Public Use
  Company Number: 2006BI018927

PATIENT
  Age: 73 Year
  Sex: Female

DRUGS (1)
  1. TYSABRI [Suspect]
     Indication: MULTIPLE SCLEROSIS
     Route: 042
     Dates: start: 20061024, end: 20061219

REACTIONS (4)
  - Musculoskeletal discomfort [Unknown]
  - Flushing [Recovered/Resolved]
  - Adverse drug reaction [Unknown]
  - Chest discomfort [Recovered/Resolved]
